FAERS Safety Report 9095963 (Version 1)
Quarter: 2013Q1

REPORT INFORMATION
  Report Type: Spontaneous
  Country: US (occurrence: US)
  Receive Date: 20130204
  Receipt Date: 20130204
  Transmission Date: 20140127
  Serious: No
  Sender: FDA-Public Use
  Company Number: US-009507513-1302USA000184

PATIENT
  Age: 74 Year
  Sex: Male

DRUGS (2)
  1. PROSCAR [Suspect]
     Indication: URINE FLOW DECREASED
     Dosage: 5 MG, QD
     Route: 048
     Dates: start: 1995, end: 2003
  2. FINASTERIDE [Suspect]
     Indication: PROSTATOMEGALY
     Dosage: UNK
     Route: 048
     Dates: start: 2009

REACTIONS (1)
  - Erectile dysfunction [Unknown]
